FAERS Safety Report 8295522-X (Version None)
Quarter: 2012Q2

REPORT INFORMATION
  Report Type: 
  Country: None (occurrence: None)
  Receive Date: 20120418
  Receipt Date: 20120405
  Transmission Date: 20120825
  Serious: Yes (Hospitalization, Other)
  Sender: FDA-Public Use
  Company Number: US-ELI_LILLY_AND_COMPANY-US201202002739

PATIENT
  Sex: Female

DRUGS (10)
  1. BENZTROPINE MESYLATE [Concomitant]
  2. ZYPREXA [Suspect]
     Indication: IMPULSIVE BEHAVIOUR
  3. SINGULAIR [Concomitant]
  4. LITHIUM CARBONATE [Concomitant]
  5. AZITHROMYCIN [Concomitant]
  6. CLONAZEPAM [Concomitant]
  7. SERTRALINE HYDROCHLORIDE [Concomitant]
  8. ACIPHEX [Concomitant]
  9. STRATTERA [Suspect]
     Indication: IMPULSIVE BEHAVIOUR
     Route: 065
  10. RISPERDAL [Concomitant]

REACTIONS (13)
  - SUICIDE ATTEMPT [None]
  - CONVULSION [None]
  - AFFECTIVE DISORDER [None]
  - HALLUCINATION [None]
  - FAECAL INCONTINENCE [None]
  - AMNESIA [None]
  - DELUSION [None]
  - MOOD SWINGS [None]
  - SEXUALLY INAPPROPRIATE BEHAVIOUR [None]
  - OFF LABEL USE [None]
  - SUICIDAL IDEATION [None]
  - AGGRESSION [None]
  - LIBIDO INCREASED [None]
